FAERS Safety Report 20591056 (Version 1)
Quarter: 2022Q1

REPORT INFORMATION
  Report Type: Spontaneous
  Country: US (occurrence: US)
  Receive Date: 20220314
  Receipt Date: 20220314
  Transmission Date: 20220423
  Serious: No
  Sender: FDA-Public Use
  Company Number: US-009507513-2203USA003906

PATIENT
  Age: 38 Year
  Sex: Male

DRUGS (3)
  1. TEMODAR [Suspect]
     Active Substance: TEMOZOLOMIDE
     Indication: Metastatic carcinoid tumour
     Route: 048
  2. CAPECITABINE [Concomitant]
     Active Substance: CAPECITABINE
     Indication: Metastatic carcinoid tumour
  3. OCTREOTIDE [Concomitant]
     Active Substance: OCTREOTIDE
     Route: 030

REACTIONS (1)
  - Product use in unapproved indication [Unknown]
